FAERS Safety Report 5587792-3 (Version None)
Quarter: 2007Q4

REPORT INFORMATION
  Report Type: 
  Country: None (occurrence: None)
  Receive Date: 20071205
  Receipt Date: 20050725
  Transmission Date: 20080405
  Serious: Yes (Hospitalization)
  Sender: FDA-Public Use
  Company Number: RS005359-USA

PATIENT
  Age: 77 Year
  Sex: Female
  Weight: 68 kg

DRUGS (3)
  1. ACIPHEX [Suspect]
     Indication: PYREXIA
     Dosage: 20 MG, ORAL
     Route: 048
     Dates: start: 20050714, end: 20050724
  2. ACIPHEX [Suspect]
     Indication: RENAL FAILURE
     Dosage: 20 MG, ORAL
     Route: 048
     Dates: start: 20050714, end: 20050724
  3. LEVAQUIN [Concomitant]

REACTIONS (8)
  - ASTHENIA [None]
  - CHILLS [None]
  - DECREASED APPETITE [None]
  - FATIGUE [None]
  - NAUSEA [None]
  - PYREXIA [None]
  - RETCHING [None]
  - URINARY TRACT INFECTION [None]
